FAERS Safety Report 16643173 (Version 1)
Quarter: 2019Q3

REPORT INFORMATION
  Report Type: Report from Study
  Country: FR (occurrence: FR)
  Receive Date: 20190729
  Receipt Date: 20190729
  Transmission Date: 20191004
  Serious: Yes (Other)
  Sender: FDA-Public Use
  Company Number: FR-TEVA-2019-FR-1084245

PATIENT
  Age: 15 Year
  Sex: Female

DRUGS (1)
  1. LEVOCETIRIZINE DIHYDROCHLORIDE. [Suspect]
     Active Substance: LEVOCETIRIZINE DIHYDROCHLORIDE
     Indication: SUICIDE ATTEMPT
     Dosage: 0.67 MG/KG
     Route: 048

REACTIONS (6)
  - Toxicity to various agents [Unknown]
  - Delirium [Unknown]
  - Hallucination [Unknown]
  - Blindness [Not Recovered/Not Resolved]
  - Intentional overdose [Unknown]
  - Suicide attempt [Unknown]
